FAERS Safety Report 22133453 (Version 5)
Quarter: 2023Q2

REPORT INFORMATION
  Report Type: Report from Study
  Country: GB (occurrence: GB)
  Receive Date: 20230324
  Receipt Date: 20230626
  Transmission Date: 20230722
  Serious: Yes (Death, Hospitalization, Other)
  Sender: FDA-Public Use
  Company Number: GB-CELLTRION INC.-2023GB005957

PATIENT

DRUGS (2)
  1. BEVACIZUMAB [Suspect]
     Active Substance: BEVACIZUMAB
     Indication: Hepatocellular carcinoma
     Dosage: 1400 MG
     Route: 065
     Dates: start: 20221104
  2. ATEZOLIZUMAB [Suspect]
     Active Substance: ATEZOLIZUMAB
     Indication: Hepatocellular carcinoma
     Dosage: 1200 MG, EVERY 3 WEEKS, START DATE OF MOST RECENT DOSE OF STUDY DRUG PRIOR TO AE/SAE: 28/MAR/2023, E
     Route: 041
     Dates: start: 20221104

REACTIONS (4)
  - Death [Fatal]
  - Hypophysitis [Recovered/Resolved]
  - Hypothyroidism [Not Recovered/Not Resolved]
  - Intentional product use issue [Unknown]

NARRATIVE: CASE EVENT DATE: 20230227
